FAERS Safety Report 9520460 (Version 1)
Quarter: 2013Q3

REPORT INFORMATION
  Report Type: Spontaneous
  Country: FR (occurrence: FR)
  Receive Date: 20130912
  Receipt Date: 20130912
  Transmission Date: 20140515
  Serious: Yes (Hospitalization)
  Sender: FDA-Public Use
  Company Number: FR-ABBOTT-13X-056-1144795-00

PATIENT
  Age: 28 Year
  Sex: Male

DRUGS (5)
  1. VALPROIC ACID [Suspect]
     Indication: EPILEPSY
     Dosage: ROUTE: ENTERAL
  2. VALPROIC ACID [Suspect]
     Route: 042
  3. VALPROIC ACID [Suspect]
     Route: 042
  4. MIDAZOLAM [Concomitant]
     Indication: PRODUCT USED FOR UNKNOWN INDICATION
  5. SUFENTANIL [Concomitant]
     Indication: PRODUCT USED FOR UNKNOWN INDICATION

REACTIONS (3)
  - Electroencephalogram abnormal [Recovered/Resolved]
  - Hyperammonaemic encephalopathy [Recovering/Resolving]
  - Ammonia increased [Recovering/Resolving]
